FAERS Safety Report 4552573-6 (Version None)
Quarter: 2005Q1

REPORT INFORMATION
  Report Type: 
  Country: None (occurrence: None)
  Receive Date: 20050114
  Receipt Date: 20040916
  Transmission Date: 20050727
  Serious: No
  Sender: FDA-Public Use
  Company Number: US-GLAXOSMITHKLINE-A0526002A

PATIENT
  Age: 57 Year
  Sex: Female

DRUGS (14)
  1. IMITREX [Suspect]
     Indication: MIGRAINE
     Dosage: 6MG AS REQUIRED
     Route: 058
     Dates: start: 19950601
  2. MS CONTIN [Concomitant]
  3. OXYCODONE HCL [Concomitant]
  4. PREVACID [Concomitant]
  5. PROZAC [Concomitant]
  6. SOMA [Concomitant]
  7. DEXEDRINE [Concomitant]
  8. ONE A DAY [Concomitant]
  9. VITAMIN E [Concomitant]
  10. TRAZODONE HCL [Concomitant]
  11. RESTORIL [Concomitant]
  12. NASACORT [Concomitant]
  13. ELIDEL CREAM 1% [Concomitant]
  14. DIAZEPAM [Concomitant]

REACTIONS (1)
  - DRUG INEFFECTIVE [None]
